FAERS Safety Report 21054821 (Version 1)
Quarter: 2022Q3

REPORT INFORMATION
  Report Type: Spontaneous
  Country: JP (occurrence: JP)
  Receive Date: 20220707
  Receipt Date: 20220707
  Transmission Date: 20221026
  Serious: Yes (Other)
  Sender: FDA-Public Use
  Company Number: JP-SA-2020SA019625

PATIENT
  Age: 87 Year
  Sex: Male
  Weight: 42 kg

DRUGS (2)
  1. DILTIAZEM HYDROCHLORIDE [Suspect]
     Active Substance: DILTIAZEM HYDROCHLORIDE
     Indication: Product used for unknown indication
     Route: 048
  2. ELIQUIS [Suspect]
     Active Substance: APIXABAN
     Indication: Thrombosis prophylaxis
     Route: 048
     Dates: start: 20190819, end: 20190929

REACTIONS (2)
  - Loss of consciousness [Unknown]
  - Blister [Unknown]

NARRATIVE: CASE EVENT DATE: 20190923
